FAERS Safety Report 9622631 (Version 1)
Quarter: 2013Q4

REPORT INFORMATION
  Report Type: Spontaneous
  Country: US (occurrence: None)
  Receive Date: 20131010
  Receipt Date: 20131010
  Transmission Date: 20140711
  Serious: Yes (Hospitalization)
  Sender: FDA-Public Use
  Company Number: 7239801

PATIENT
  Age: 76 Year
  Sex: Female

DRUGS (2)
  1. LEVOTHYROXINE [Suspect]
     Indication: HYPOTHYROIDISM
     Route: 048
  2. TAMOXIFEN [Suspect]
     Route: 048
     Dates: start: 2007

REACTIONS (1)
  - Depression [None]
